FAERS Safety Report 20354758 (Version 1)
Quarter: 2022Q1

REPORT INFORMATION
  Report Type: Spontaneous
  Country: US (occurrence: None)
  Receive Date: 20220119
  Receipt Date: 20220119
  Transmission Date: 20220423
  Serious: No
  Sender: FDA-Public Use
  Company Number: None

PATIENT
  Age: 50 Year
  Sex: Male

DRUGS (2)
  1. DARAPRIM [Suspect]
     Active Substance: PYRIMETHAMINE
     Indication: Toxoplasmosis
     Dosage: FREQUENCY : DAILY;?
     Route: 048
     Dates: start: 20220104, end: 20220119
  2. SULFADIAZINE [Suspect]
     Active Substance: SULFADIAZINE
     Indication: Toxoplasmosis
     Dosage: FREQUENCY : 4 TIMES A DAY;?
     Route: 048
     Dates: start: 20220104, end: 20220119

REACTIONS (2)
  - Heavy menstrual bleeding [None]
  - Heavy menstrual bleeding [None]

NARRATIVE: CASE EVENT DATE: 20220104
